FAERS Safety Report 4810462-3 (Version None)
Quarter: 2005Q4

REPORT INFORMATION
  Report Type: 
  Country: None (occurrence: None)
  Receive Date: 20051025
  Receipt Date: 20051025
  Transmission Date: 20060501
  Serious: Yes (Death)
  Sender: FDA-Public Use
  Company Number: None

PATIENT
  Age: 75 Year
  Sex: Male
  Weight: 82.1011 kg

DRUGS (12)
  1. DOXIL [Suspect]
     Indication: PROSTATE CANCER
     Dosage: 48 MG EVERY 28 DAYS IV
     Route: 042
     Dates: start: 20040910, end: 20050602
  2. TAXOTERE [Suspect]
     Indication: PROSTATE CANCER
     Dosage: 48 MG EVERY 28 DAYS IV
     Route: 042
     Dates: start: 20040910, end: 20050602
  3. COUMADIN [Concomitant]
  4. NORVASC [Concomitant]
  5. AMBIEN [Concomitant]
  6. PROCHLORPERAZINE [Concomitant]
  7. DOCUSAT SODIUM [Concomitant]
  8. OXYCODONE [Concomitant]
  9. DURAGESIC-100 [Concomitant]
  10. PROZAC [Concomitant]
  11. ZOFRAN [Concomitant]
  12. COMPAZINE [Concomitant]

REACTIONS (1)
  - DISEASE PROGRESSION [None]
